FAERS Safety Report 6131206-1 (Version None)
Quarter: 2009Q1

REPORT INFORMATION
  Report Type: 
  Country: None (occurrence: None)
  Receive Date: 20090325
  Receipt Date: 20090317
  Transmission Date: 20090719
  Serious: Yes (Other)
  Sender: FDA-Public Use
  Company Number: US-ELI_LILLY_AND_COMPANY-US200902001025

PATIENT
  Age: 86 Year
  Sex: Female

DRUGS (3)
  1. HUMULIN 70/30 [Suspect]
  2. COUMADIN [Concomitant]
  3. NOVOLIN R [Concomitant]

REACTIONS (12)
  - ARTHRALGIA [None]
  - BLOOD PRESSURE DECREASED [None]
  - CARDIAC FIBRILLATION [None]
  - CARPAL TUNNEL SYNDROME [None]
  - DIZZINESS [None]
  - FALL [None]
  - FEELING ABNORMAL [None]
  - HEAD INJURY [None]
  - KNEE OPERATION [None]
  - LOSS OF CONSCIOUSNESS [None]
  - MALAISE [None]
  - SPINAL COLUMN STENOSIS [None]
